FAERS Safety Report 14058058 (Version 2)
Quarter: 2017Q4

REPORT INFORMATION
  Report Type: Spontaneous
  Country: US (occurrence: US)
  Receive Date: 20171006
  Receipt Date: 20171201
  Transmission Date: 20180321
  Serious: Yes (Other)
  Sender: FDA-Public Use
  Company Number: US-INCYTE CORPORATION-2017IN008436

PATIENT

DRUGS (6)
  1. JAKAFI [Suspect]
     Active Substance: RUXOLITINIB
     Dosage: 5 MG, BID
     Route: 048
  2. JAKAFI [Suspect]
     Active Substance: RUXOLITINIB
     Dosage: 10 MG, BID
     Route: 048
  3. JAKAFI [Suspect]
     Active Substance: RUXOLITINIB
     Indication: POLYCYTHAEMIA VERA
     Dosage: 15 MG, BID
     Route: 048
  4. NIFEDIPINE. [Concomitant]
     Active Substance: NIFEDIPINE
     Indication: VASCULAR OCCLUSION
  5. LOSARTAN. [Concomitant]
     Active Substance: LOSARTAN
     Indication: VASCULAR OCCLUSION
  6. HYDROXYUREA. [Concomitant]
     Active Substance: HYDROXYUREA
     Indication: WHITE BLOOD CELL COUNT

REACTIONS (5)
  - Disease progression [Not Recovered/Not Resolved]
  - White blood cell count abnormal [Unknown]
  - Platelet count decreased [Unknown]
  - Haemorrhage [Unknown]
  - Skin lesion [Unknown]

NARRATIVE: CASE EVENT DATE: 20170927
